FAERS Safety Report 22176414 (Version 1)
Quarter: 2023Q2

REPORT INFORMATION
  Report Type: Spontaneous
  Country: IT (occurrence: IT)
  Receive Date: 20230405
  Receipt Date: 20230405
  Transmission Date: 20230721
  Serious: Yes (Other)
  Sender: FDA-Public Use
  Company Number: None

PATIENT
  Age: 51 Year
  Sex: Male

DRUGS (1)
  1. VALIUM [Suspect]
     Active Substance: DIAZEPAM
     Indication: Anxiety
     Dosage: 5 MG/ML, ORAL DROPS, SOLUTION.
     Route: 048
     Dates: start: 20230101, end: 20230105

REACTIONS (2)
  - Sopor [Unknown]
  - Poisoning [Unknown]

NARRATIVE: CASE EVENT DATE: 20230105
